FAERS Safety Report 5987915-8 (Version None)
Quarter: 2008Q4

REPORT INFORMATION
  Report Type: 
  Country: None (occurrence: None)
  Receive Date: 20081210
  Receipt Date: 20080417
  Transmission Date: 20090506
  Serious: No
  Sender: FDA-Public Use
  Company Number: US-AMGEN-KDL271471

PATIENT
  Sex: Female
  Weight: 60.8 kg

DRUGS (7)
  1. ENBREL [Suspect]
     Indication: RHEUMATOID ARTHRITIS
     Route: 058
     Dates: start: 20080201, end: 20080201
  2. METHOTREXATE [Concomitant]
  3. FOSAMAX [Concomitant]
  4. ALEVE [Concomitant]
  5. CALCIUM [Concomitant]
  6. OSTEOBIFLEX [Concomitant]
  7. MULTI-VITAMINS [Concomitant]

REACTIONS (3)
  - HYPERSENSITIVITY [None]
  - RASH [None]
  - SWELLING [None]
